FAERS Safety Report 9820429 (Version 1)
Quarter: 2013Q4

REPORT INFORMATION
  Report Type: Spontaneous
  Country: US (occurrence: None)
  Receive Date: 20131028
  Receipt Date: 20131028
  Transmission Date: 20140711
  Serious: Yes (Hospitalization)
  Sender: FDA-Public Use
  Company Number: 2013US001617

PATIENT
  Age: 53 Year
  Sex: Male
  Weight: 104 kg

DRUGS (6)
  1. ICLUSIG [Suspect]
     Indication: CHRONIC MYELOID LEUKAEMIA
     Route: 048
     Dates: start: 20130514, end: 20130516
  2. LASIX (FUROSEMIDE) [Concomitant]
  3. ASPIRIN (ASPIRIN) [Concomitant]
  4. LISINOPRIL (LISINOPRIL) [Concomitant]
  5. HYDRALAZINE (HYDRALAZINE) [Concomitant]
  6. OXYCODONE (OXYCODONE) [Concomitant]

REACTIONS (4)
  - Pancreatitis [None]
  - Hypertension [None]
  - Arthralgia [None]
  - Headache [None]
